FAERS Safety Report 5175847-7 (Version None)
Quarter: 2006Q4

REPORT INFORMATION
  Report Type: 
  Country: None (occurrence: None)
  Receive Date: 20061215
  Receipt Date: 20061205
  Transmission Date: 20070319
  Serious: Yes (Hospitalization, Disabling)
  Sender: FDA-Public Use
  Company Number: PHBS2006DK18970

PATIENT
  Age: 71 Year
  Sex: Male

DRUGS (16)
  1. ZOLEDRONIC ACID [Suspect]
     Indication: METASTASES TO BONE
     Dosage: 4 MG, QMO
     Route: 042
     Dates: start: 20050307, end: 20061102
  2. CASODEX [Concomitant]
     Dosage: 150 MG, QD
     Route: 048
  3. CITALOPRAM HYDROBROMIDE [Concomitant]
     Dosage: 30 MG, QD
     Route: 048
  4. FEM-MONO - SLOW RELEASE [Concomitant]
     Dosage: 90 MG, QD
     Route: 048
  5. LACTULOSE [Concomitant]
     Dosage: 30 DF, BID
     Route: 048
  6. LAXOBERAL [Concomitant]
     Dosage: 15 DRP, BID
     Route: 048
  7. MAGNYL SVAGE [Concomitant]
     Dosage: 75 MG, QD
     Route: 048
  8. PINEX /DEN/ [Concomitant]
     Dosage: 1000 MG, QID
     Route: 048
  9. PREDNISOLONE [Concomitant]
     Dosage: 2.5 MG, QD
     Route: 048
  10. CALCIUM CARBONATE [Concomitant]
     Route: 048
  11. METADON [Concomitant]
     Indication: PAIN
     Dosage: 10 MG, TID
     Route: 048
  12. MAREVAN ^NYCOMED^ [Concomitant]
     Route: 048
     Dates: end: 20060627
  13. KETOGAN [Concomitant]
     Dosage: PRN
     Route: 048
  14. MICROLAX                                /DEN/ [Concomitant]
     Dosage: PRN
     Route: 054
  15. PRIMPERAN TAB [Concomitant]
     Dosage: PRN
     Route: 054
  16. NITROLINGUAL [Concomitant]
     Dosage: PRN
     Route: 060

REACTIONS (2)
  - OSTEONECROSIS [None]
  - PAIN IN JAW [None]
